FAERS Safety Report 5391477-6 (Version None)
Quarter: 2007Q3

REPORT INFORMATION
  Report Type: 
  Country: None (occurrence: None)
  Receive Date: 20070719
  Receipt Date: 20070309
  Transmission Date: 20080115
  Serious: Yes (Death, Life-Threatening, Hospitalization)
  Sender: FDA-Public Use
  Company Number: FRWYE259118AUG03

PATIENT
  Sex: Male

DRUGS (4)
  1. RAPAMUNE [Suspect]
     Indication: PROPHYLAXIS AGAINST TRANSPLANT REJECTION
     Route: 048
     Dates: start: 20030210, end: 20030808
  2. CELESTENE [Suspect]
     Indication: PROPHYLAXIS AGAINST TRANSPLANT REJECTION
     Dosage: UNKNOWN
     Route: 048
     Dates: end: 20030808
  3. AMLODIPINE [Concomitant]
     Dosage: UNKNOWN
     Route: 048
     Dates: end: 20030808
  4. AZATHIOPRINE SODIUM [Suspect]
     Dosage: UNKNOWN
     Route: 048
     Dates: end: 20030808

REACTIONS (14)
  - CARDIAC ARREST [None]
  - CIRCULATORY COLLAPSE [None]
  - CYTOMEGALOVIRUS INFECTION [None]
  - DEHYDRATION [None]
  - LIVER DISORDER [None]
  - MULTI-ORGAN FAILURE [None]
  - PNEUMONIA BACTERIAL [None]
  - PNEUMOTHORAX [None]
  - PROTEUS INFECTION [None]
  - PSEUDOMONAL SEPSIS [None]
  - RESPIRATORY FAILURE [None]
  - STENOTROPHOMONAS INFECTION [None]
  - STENOTROPHOMONAS SEPSIS [None]
  - URINARY TRACT INFECTION PSEUDOMONAL [None]
